FAERS Safety Report 8418923-5 (Version None)
Quarter: 2012Q2

REPORT INFORMATION
  Report Type: 
  Country: None (occurrence: None)
  Receive Date: 20120607
  Receipt Date: 20120207
  Transmission Date: 20120825
  Serious: Yes (Other)
  Sender: FDA-Public Use
  Company Number: US-ROCHE-1075447

PATIENT
  Sex: Female
  Weight: 90.8 kg

DRUGS (12)
  1. LIPITOR [Concomitant]
  2. MAXAIR [Concomitant]
  3. NORVASC [Concomitant]
  4. SINGULAIR [Concomitant]
  5. OMALIZUMAB [Suspect]
     Indication: ASTHMA
     Route: 058
     Dates: start: 20120131
  6. ADVAIR DISKUS 100/50 [Concomitant]
  7. ASPIRIN [Concomitant]
  8. PREMARIN [Concomitant]
  9. PRILOSEC [Concomitant]
  10. MICARDIS [Concomitant]
  11. JANUVIA [Concomitant]
  12. POTASSIUM [Concomitant]

REACTIONS (1)
  - ATRIAL FIBRILLATION [None]
